FAERS Safety Report 7768828-8 (Version None)
Quarter: 2011Q3

REPORT INFORMATION
  Report Type: 
  Country: None (occurrence: None)
  Receive Date: 20110922
  Receipt Date: 20110405
  Transmission Date: 20111222
  Serious: Yes (Other)
  Sender: FDA-Public Use
  Company Number: US-ASTRAZENECA-2011SE04757

PATIENT
  Age: 76 Year
  Sex: Female

DRUGS (2)
  1. SEROQUEL [Suspect]
     Route: 048
  2. SEROQUEL [Suspect]
     Indication: BRONCHITIS
     Route: 048

REACTIONS (11)
  - HYPERTENSION [None]
  - INSOMNIA [None]
  - MALAISE [None]
  - OFF LABEL USE [None]
  - PNEUMONIA [None]
  - BRONCHITIS [None]
  - DRY MOUTH [None]
  - SPEECH DISORDER [None]
  - ASTHENIA [None]
  - SUICIDAL IDEATION [None]
  - DRUG DOSE OMISSION [None]
